FAERS Safety Report 5867797-5 (Version None)
Quarter: 2008Q3

REPORT INFORMATION
  Report Type: 
  Country: None (occurrence: None)
  Receive Date: 20080902
  Receipt Date: 20080821
  Transmission Date: 20090109
  Serious: Yes (Hospitalization, Other)
  Sender: FDA-Public Use
  Company Number: GB-PFIZER INC-2008038784

PATIENT
  Sex: Female
  Weight: 58 kg

DRUGS (9)
  1. EPIRUBICIN HYDROCHLORIDE [Suspect]
     Indication: BREAST CANCER
     Route: 042
  2. EPIRUBICIN HYDROCHLORIDE [Suspect]
     Indication: METASTASES TO LIVER
  3. EPIRUBICIN HYDROCHLORIDE [Suspect]
     Indication: METASTASES TO LUNG
  4. CYCLOPHOSPHAMIDE [Concomitant]
     Route: 042
  5. DEXAMETHASONE TAB [Concomitant]
     Route: 048
     Dates: start: 20080408, end: 20080429
  6. LANSOPRAZOLE [Concomitant]
     Route: 048
  7. MELOXICAM [Concomitant]
     Route: 048
  8. AMOXICILLIN + CLAVULANATE POTASSIUM [Concomitant]
  9. ALBUMIN (HUMAN) [Concomitant]
     Dates: start: 20080507, end: 20080509

REACTIONS (2)
  - MALIGNANT ASCITES [None]
  - NEUTROPENIA [None]
